FAERS Safety Report 15708837 (Version 2)
Quarter: 2018Q4

REPORT INFORMATION
  Report Type: Spontaneous
  Country: US (occurrence: US)
  Receive Date: 20181211
  Receipt Date: 20181212
  Transmission Date: 20190205
  Serious: No
  Sender: FDA-Public Use
  Company Number: US-BEH-2018097428

PATIENT
  Age: 74 Year
  Sex: Female

DRUGS (1)
  1. HIZENTRA [Suspect]
     Active Substance: HUMAN IMMUNOGLOBULIN G
     Indication: HYPOGAMMAGLOBULINAEMIA
     Dosage: 10 G, QW
     Route: 058
     Dates: start: 201805

REACTIONS (3)
  - Prothrombin level increased [Unknown]
  - Infusion site bruising [Recovered/Resolved]
  - Hyperventilation [Unknown]

NARRATIVE: CASE EVENT DATE: 20181202
